FAERS Safety Report 4426052-0 (Version None)
Quarter: 2004Q3

REPORT INFORMATION
  Report Type: 
  Country: None (occurrence: None)
  Receive Date: 20040810
  Receipt Date: 20040727
  Transmission Date: 20050211
  Serious: Yes (Hospitalization)
  Sender: FDA-Public Use
  Company Number: 2004AP03456

PATIENT
  Age: 60 Year
  Sex: Male
  Weight: 63 kg

DRUGS (5)
  1. SEROQUEL [Suspect]
     Indication: DEPRESSION
     Dosage: 25 MG TID PO
     Route: 048
     Dates: start: 20040507, end: 20040618
  2. CONTOMIN [Suspect]
     Indication: DEPRESSION
     Dosage: 100 MG TID PO
     Route: 048
     Dates: start: 20040527, end: 20040618
  3. TRYPTANOL [Concomitant]
  4. ROHYPNOL [Concomitant]
  5. LENDORM [Concomitant]

REACTIONS (7)
  - CHOLECYSTITIS [None]
  - CHOLELITHIASIS [None]
  - CONDITION AGGRAVATED [None]
  - DEPRESSION [None]
  - JAUNDICE [None]
  - LIVER DISORDER [None]
  - VIRAL INFECTION [None]
